FAERS Safety Report 24812399 (Version 1)
Quarter: 2025Q1

REPORT INFORMATION
  Report Type: Report from Study
  Country: AR (occurrence: AR)
  Receive Date: 20250106
  Receipt Date: 20250106
  Transmission Date: 20250408
  Serious: Yes (Hospitalization)
  Sender: BIOGEN
  Company Number: AR-BIOGEN-2025BI01295803

PATIENT
  Age: 52 Year
  Sex: Female

DRUGS (1)
  1. TECFIDERA [Suspect]
     Active Substance: DIMETHYL FUMARATE
     Indication: Multiple sclerosis
     Dosage: LAST ADMINISTRATION ON 02JAN2025
     Route: 050
     Dates: start: 20210419

REACTIONS (1)
  - Cerebral thrombosis [Not Recovered/Not Resolved]

NARRATIVE: CASE EVENT DATE: 20241101
